FAERS Safety Report 11680691 (Version 2)
Quarter: 2015Q4

REPORT INFORMATION
  Report Type: Spontaneous
  Country: US (occurrence: US)
  Receive Date: 20151027
  Receipt Date: 20151104
  Transmission Date: 20160304
  Serious: No
  Sender: FDA-Public Use
  Company Number: US-ELI_LILLY_AND_COMPANY-US201003004384

PATIENT
  Age: 68 Year
  Sex: Female

DRUGS (3)
  1. FORTEO [Suspect]
     Active Substance: TERIPARATIDE
     Dosage: 20 UG, DAILY (1/D)
  2. FORTEO [Suspect]
     Active Substance: TERIPARATIDE
     Dosage: 20 UG, DAILY (1/D)
  3. FORTEO [Suspect]
     Active Substance: TERIPARATIDE
     Indication: OSTEOPOROSIS
     Dosage: 20 UG, DAILY (1/D)
     Dates: start: 201009

REACTIONS (11)
  - Malaise [Recovered/Resolved]
  - Chromaturia [Unknown]
  - Spinal deformity [Unknown]
  - Asthenia [Recovering/Resolving]
  - Injection site pain [Unknown]
  - Urinary sediment present [Unknown]
  - Upper respiratory tract infection [Recovered/Resolved]
  - Joint swelling [Unknown]
  - Muscle spasms [Unknown]
  - Nasopharyngitis [Unknown]
  - Speech disorder [Unknown]
